FAERS Safety Report 9079863 (Version 1)
Quarter: 2013Q1

REPORT INFORMATION
  Report Type: Report from Study
  Country: US (occurrence: US)
  Receive Date: 20130130
  Receipt Date: 20130130
  Transmission Date: 20140127
  Serious: Yes (Hospitalization, Other)
  Sender: FDA-Public Use
  Company Number: US-ABBOTT-12P-163-0945796-00

PATIENT
  Sex: Female
  Weight: 74 kg

DRUGS (2)
  1. HUMIRA 40 MG/0.8 ML PEN [Suspect]
     Indication: RHEUMATOID ARTHRITIS
     Route: 058
     Dates: start: 200801, end: 20100905
  2. HUMIRA 40 MG/0.8 ML PEN [Suspect]
     Dates: start: 20120604

REACTIONS (2)
  - Rheumatoid arthritis [Recovered/Resolved]
  - Escherichia infection [Recovered/Resolved]
